FAERS Safety Report 6329907-5 (Version None)
Quarter: 2009Q3

REPORT INFORMATION
  Report Type: 
  Country: None (occurrence: None)
  Receive Date: 20090825
  Receipt Date: 20090813
  Transmission Date: 20100115
  Serious: Yes (Other)
  Sender: FDA-Public Use
  Company Number: ADR15262009

PATIENT
  Age: 60 Year
  Sex: Female

DRUGS (7)
  1. ALENDRONIC ACID          (MFR: UNKNOWN) [Suspect]
     Dosage: 70 MG ORAL
     Route: 048
     Dates: start: 20060201
  2. DICLOFENAC [Concomitant]
  3. ETANERCEPT [Concomitant]
  4. LANSOPRAZOLE [Concomitant]
  5. LEFLUNOMIDE [Concomitant]
  6. ATORVASTATIN [Concomitant]
  7. CALCICHEW [Concomitant]

REACTIONS (2)
  - RENAL FAILURE [None]
  - TUBULOINTERSTITIAL NEPHRITIS [None]
